FAERS Safety Report 11659152 (Version 1)
Quarter: 2015Q4

REPORT INFORMATION
  Report Type: Spontaneous
  Country: US (occurrence: US)
  Receive Date: 20151026
  Receipt Date: 20151026
  Transmission Date: 20160304
  Serious: No
  Sender: FDA-Public Use
  Company Number: US-MEDA-2010080067

PATIENT
  Age: 70 Year
  Sex: Male

DRUGS (4)
  1. NASONEX [Concomitant]
     Active Substance: MOMETASONE FUROATE
     Indication: NASAL DISORDER
     Dosage: 2 SPRAYS
     Dates: start: 20100707
  2. ASTEPRO [Suspect]
     Active Substance: AZELASTINE HYDROCHLORIDE
     Indication: RHINITIS ALLERGIC
     Dates: start: 20100818
  3. ASTEPRO [Suspect]
     Active Substance: AZELASTINE HYDROCHLORIDE
     Indication: DIZZINESS
     Dates: start: 20100818
  4. NASONEX [Concomitant]
     Active Substance: MOMETASONE FUROATE
     Indication: DIZZINESS
     Dosage: 2 SPRAYS
     Dates: start: 20100707

REACTIONS (3)
  - Balance disorder [Not Recovered/Not Resolved]
  - Condition aggravated [Not Recovered/Not Resolved]
  - Dizziness [Not Recovered/Not Resolved]

NARRATIVE: CASE EVENT DATE: 20100818
